FAERS Safety Report 9366256 (Version 1)
Quarter: 2013Q2

REPORT INFORMATION
  Report Type: Spontaneous
  Country: US (occurrence: None)
  Receive Date: 20130620
  Receipt Date: 20130620
  Transmission Date: 20140414
  Serious: No
  Sender: FDA-Public Use
  Company Number: 2013AP006058

PATIENT
  Age: 48 Year
  Sex: Female

DRUGS (3)
  1. GABAPENTIN [Suspect]
  2. HYDROCODONE [Suspect]
  3. DIAZEPAM [Suspect]

REACTIONS (4)
  - Somnolence [None]
  - Dry mouth [None]
  - Urinary retention [None]
  - Drug abuse [None]
